FAERS Safety Report 5651977-8 (Version None)
Quarter: 2008Q1

REPORT INFORMATION
  Report Type: 
  Country: None (occurrence: None)
  Receive Date: 20080305
  Receipt Date: 20080213
  Transmission Date: 20080703
  Serious: Yes (Other)
  Sender: FDA-Public Use
  Company Number: US-PFIZER INC-2008014862

PATIENT
  Sex: Male

DRUGS (2)
  1. CHANTIX [Suspect]
  2. PROZAC [Concomitant]

REACTIONS (3)
  - ANGER [None]
  - SELF-INJURIOUS IDEATION [None]
  - THINKING ABNORMAL [None]
